FAERS Safety Report 7908671-X (Version None)
Quarter: 2011Q4

REPORT INFORMATION
  Report Type: 
  Country: None (occurrence: None)
  Receive Date: 20111111
  Receipt Date: 20111109
  Transmission Date: 20120403
  Serious: Yes (Death)
  Sender: FDA-Public Use
  Company Number: PHHY2011DE098855

PATIENT
  Age: 88 Year
  Sex: Male
  Weight: 86 kg

DRUGS (2)
  1. ZOMETA [Suspect]
     Indication: METASTASES TO BONE
     Dosage: 4 MG/5ML
     Route: 042
     Dates: start: 20110308
  2. COUMADIN [Concomitant]
     Dosage: UNK UKN, UNK

REACTIONS (8)
  - HYPOGEUSIA [None]
  - HAEMORRHAGE [None]
  - RENAL FAILURE ACUTE [None]
  - DECREASED APPETITE [None]
  - PYREXIA [None]
  - TREMOR [None]
  - BLOOD COUNT ABNORMAL [None]
  - PNEUMONIA [None]
